FAERS Safety Report 8622961 (Version 7)
Quarter: 2013Q2

REPORT INFORMATION
  Report Type: Report from Study
  Country: DE (occurrence: DE)
  Receive Date: 20120619
  Receipt Date: 20130529
  Transmission Date: 20140414
  Serious: Yes (Other)
  Sender: FDA-Public Use
  Company Number: DE-ROCHE-1063529

PATIENT
  Age: 66 Year
  Sex: Male
  Weight: 69 kg

DRUGS (13)
  1. VEMURAFENIB [Suspect]
     Indication: MALIGNANT MELANOMA
     Route: 048
     Dates: start: 20120203
  2. VEMURAFENIB [Suspect]
     Dosage: LAST DOSE 05/APR/2012
     Route: 048
     Dates: start: 20120330
  3. VEMURAFENIB [Suspect]
     Dosage: DATE OF LAST DOSE PRIOR TO EVENT: 03/JUN/2012
     Route: 048
     Dates: start: 20120526, end: 20120604
  4. VEMURAFENIB [Suspect]
     Route: 048
     Dates: start: 20120606
  5. NITRENDIPIN [Concomitant]
     Route: 065
     Dates: start: 2010
  6. NITRENDIPIN [Concomitant]
     Route: 065
     Dates: start: 20120202
  7. METOHEXAL [Concomitant]
     Route: 065
     Dates: start: 2010
  8. SIMVASTATIN [Concomitant]
     Route: 065
     Dates: start: 2010
  9. METOCLOPRAMIDE [Concomitant]
     Route: 065
     Dates: start: 20120225
  10. PANTOZOL [Concomitant]
     Route: 065
     Dates: start: 20120329
  11. TRAMAL LONG [Concomitant]
     Route: 065
     Dates: start: 201201
  12. TRAMAL LONG [Concomitant]
     Route: 065
     Dates: start: 20120330
  13. TRAMAL LONG [Concomitant]
     Route: 065
     Dates: start: 20120330

REACTIONS (1)
  - Malignant melanoma [Recovered/Resolved]
